FAERS Safety Report 20810442 (Version 2)
Quarter: 2022Q2

REPORT INFORMATION
  Report Type: Spontaneous
  Country: US (occurrence: US)
  Receive Date: 20220510
  Receipt Date: 20220614
  Transmission Date: 20220721
  Serious: No
  Sender: FDA-Public Use
  Company Number: US-LUNDBECK-DKLU3047663

PATIENT
  Age: 31 Year
  Sex: Female

DRUGS (14)
  1. VYEPTI [Suspect]
     Active Substance: EPTINEZUMAB-JJMR
     Indication: Product used for unknown indication
     Route: 041
  2. INDOMETHACIN [Concomitant]
     Active Substance: INDOMETHACIN
     Indication: Pain
     Dosage: 1 CAPSULE 2-3 TIMES PER DAY
     Route: 048
     Dates: start: 20210325, end: 20210907
  3. NORCO [Concomitant]
     Active Substance: ACETAMINOPHEN\HYDROCODONE BITARTRATE
     Indication: Headache
     Dosage: 5-325 MG
     Route: 065
     Dates: start: 20200324, end: 20220308
  4. UBRELVY [Concomitant]
     Active Substance: UBROGEPANT
     Indication: Product used for unknown indication
     Route: 065
  5. CYCLOBENZAPRINE HYDROCHLORIDE [Concomitant]
     Active Substance: CYCLOBENZAPRINE HYDROCHLORIDE
     Indication: Product used for unknown indication
     Dosage: 1/2 TO 1 TAB PO QHS
     Route: 048
  6. NORTRIPTYLINE HYDROCHLORIDE [Concomitant]
     Active Substance: NORTRIPTYLINE HYDROCHLORIDE
     Indication: Product used for unknown indication
     Route: 048
  7. NORTRIPTYLINE HYDROCHLORIDE [Concomitant]
     Active Substance: NORTRIPTYLINE HYDROCHLORIDE
     Route: 048
     Dates: start: 20220404
  8. METOCLOPRAMIDE [Concomitant]
     Active Substance: METOCLOPRAMIDE
     Indication: Headache
     Dosage: PRN
     Route: 048
  9. QULIPTA [Concomitant]
     Active Substance: ATOGEPANT
     Indication: Product used for unknown indication
     Route: 065
     Dates: start: 20220531
  10. Hydrocodone Bitartrate Acetaminophen [Concomitant]
     Indication: Product used for unknown indication
     Dosage: 5-325MG PRN
     Route: 048
  11. Hydrocodone Bitartrate Acetaminophen [Concomitant]
     Dosage: 5-325 MG PTN
     Route: 048
     Dates: start: 20220308
  12. KARIVA [Concomitant]
     Active Substance: DESOGESTREL\ETHINYL ESTRADIOL
     Indication: Product used for unknown indication
     Dosage: 0.15-0.02 MG
     Route: 048
  13. VALIUM [Concomitant]
     Active Substance: DIAZEPAM
     Indication: Anxiety disorder
     Dosage: PRN
     Route: 048
     Dates: start: 20220204, end: 20220218
  14. BOTOX [Concomitant]
     Active Substance: ONABOTULINUMTOXINA
     Indication: Product used for unknown indication
     Dosage: 105 UNITS
     Route: 030
     Dates: start: 20200121, end: 20210608

REACTIONS (4)
  - Stomatitis [Recovered/Resolved]
  - Nail infection [Recovered/Resolved]
  - Intermenstrual bleeding [Recovered/Resolved]
  - Migraine [Unknown]
